FAERS Safety Report 9380586 (Version 1)
Quarter: 2013Q3

REPORT INFORMATION
  Report Type: Spontaneous
  Country: US (occurrence: US)
  Receive Date: 20130702
  Receipt Date: 20130702
  Transmission Date: 20140515
  Serious: No
  Sender: FDA-Public Use
  Company Number: US-PFIZER INC-2013194313

PATIENT
  Age: 60 Year
  Sex: Male
  Weight: 90.7 kg

DRUGS (4)
  1. VIAGRA [Suspect]
     Indication: ERECTILE DYSFUNCTION
     Dosage: 50 MG, SINGLE
     Route: 048
     Dates: start: 201305, end: 2013
  2. CLOPIDOGREL [Interacting]
     Indication: BLOOD PRESSURE ABNORMAL
     Dosage: UNK
     Dates: start: 201208
  3. METOPROLOL TARTRATE [Interacting]
     Indication: BLOOD PRESSURE ABNORMAL
     Dosage: UNK
     Dates: start: 201208
  4. SIMVASTATIN [Interacting]
     Indication: BLOOD CHOLESTEROL ABNORMAL
     Dosage: UNK
     Dates: start: 201208

REACTIONS (2)
  - Drug ineffective [Unknown]
  - Drug interaction [Unknown]
